FAERS Safety Report 8902672 (Version 1)
Quarter: 2012Q4

REPORT INFORMATION
  Report Type: 
  Country: IT (occurrence: IT)
  Receive Date: 20121112
  Receipt Date: 20121112
  Transmission Date: 20130627
  Serious: No
  Sender: FDA-Public Use
  Company Number: PHHY2012IT103270

PATIENT
  Age: 3 Year
  Sex: Male

DRUGS (2)
  1. CEFPODOXIME [Suspect]
     Indication: OTITIS MEDIA
     Dosage: 8 mg, daily
     Route: 048
     Dates: start: 20120223, end: 20120223
  2. CEFPODOXIME [Suspect]
     Indication: COUGH

REACTIONS (3)
  - Rash pruritic [Recovering/Resolving]
  - Urticaria [Recovering/Resolving]
  - Rash [Recovering/Resolving]
